FAERS Safety Report 15590194 (Version 1)
Quarter: 2018Q4

REPORT INFORMATION
  Report Type: Spontaneous
  Country: BR (occurrence: BR)
  Receive Date: 20181106
  Receipt Date: 20181106
  Transmission Date: 20190205
  Serious: Yes (Other)
  Sender: FDA-Public Use
  Company Number: BR-GLAXOSMITHKLINE-BR2018GSK201081

PATIENT
  Age: 69 Year
  Sex: Male
  Weight: 68 kg

DRUGS (1)
  1. ZINNAT [Suspect]
     Active Substance: CEFUROXIME AXETIL
     Indication: ANTIBIOTIC PROPHYLAXIS
     Dosage: 1 DF, BID
     Route: 048
     Dates: start: 20181029

REACTIONS (7)
  - Constipation [Unknown]
  - Bladder pain [Unknown]
  - Proctalgia [Unknown]
  - Dysstasia [Unknown]
  - Gastrointestinal pain [Unknown]
  - Syncope [Unknown]
  - Faecaloma [Unknown]

NARRATIVE: CASE EVENT DATE: 20181030
